FAERS Safety Report 9226536 (Version 7)
Quarter: 2015Q2

REPORT INFORMATION
  Report Type: Report from Study
  Country: ES (occurrence: ES)
  Receive Date: 20130412
  Receipt Date: 20150603
  Transmission Date: 20150821
  Serious: Yes (Hospitalization, Congenital Anomaly)
  Sender: FDA-Public Use
  Company Number: ES-BIOGENIDEC-2013BI030309

PATIENT
  Age: 0 Year
  Sex: Male
  Weight: 3 kg

DRUGS (1)
  1. TYSABRI [Suspect]
     Active Substance: NATALIZUMAB
     Indication: MATERNAL EXPOSURE TIMING UNSPECIFIED
     Route: 064
     Dates: start: 20080618, end: 20120518

REACTIONS (4)
  - Neonatal neuroblastoma [Not Recovered/Not Resolved]
  - Pyelocaliectasis [Unknown]
  - Escherichia urinary tract infection [Unknown]
  - Meningitis enteroviral [Unknown]

NARRATIVE: CASE EVENT DATE: 20121203
